FAERS Safety Report 11147500 (Version 2)
Quarter: 2015Q2

REPORT INFORMATION
  Report Type: Spontaneous
  Country: NO (occurrence: NO)
  Receive Date: 20150529
  Receipt Date: 20150605
  Transmission Date: 20150821
  Serious: Yes (Life-Threatening, Hospitalization)
  Sender: FDA-Public Use
  Company Number: NO-UCBSA-2015017232

PATIENT
  Age: 49 Year
  Sex: Male

DRUGS (1)
  1. CIMZIA [Suspect]
     Active Substance: CERTOLIZUMAB PEGOL
     Indication: ANKYLOSING SPONDYLITIS
     Route: 058
     Dates: start: 20140217, end: 20150221

REACTIONS (2)
  - Necrotising fasciitis [Recovered/Resolved with Sequelae]
  - Toxic shock syndrome [Recovered/Resolved with Sequelae]

NARRATIVE: CASE EVENT DATE: 20150221
